FAERS Safety Report 6511799-2 (Version None)
Quarter: 2009Q4

REPORT INFORMATION
  Report Type: 
  Country: None (occurrence: None)
  Receive Date: 20091222
  Receipt Date: 20091110
  Transmission Date: 20100525
  Serious: Yes (Other)
  Sender: FDA-Public Use
  Company Number: US-SANOFI-AVENTIS-2009SA010135

PATIENT
  Age: 74 Year
  Sex: Male

DRUGS (1)
  1. PLAVIX [Suspect]
     Indication: STENT PLACEMENT
     Route: 065

REACTIONS (3)
  - PLATELET AGGREGATION DECREASED [None]
  - THROMBOSIS IN DEVICE [None]
  - VENTRICULAR SEPTAL DEFECT ACQUIRED [None]
